FAERS Safety Report 25888468 (Version 2)
Quarter: 2025Q4

REPORT INFORMATION
  Report Type: Report from Study
  Country: EU (occurrence: EU)
  Receive Date: 20251007
  Receipt Date: 20251126
  Transmission Date: 20260117
  Serious: No
  Sender: ABBVIE
  Company Number: EU-ABBVIE-6487226

PATIENT
  Age: 80 Year
  Sex: Female

DRUGS (27)
  1. VENETOCLAX [Suspect]
     Active Substance: VENETOCLAX
     Indication: Acute myeloid leukaemia
     Dosage: 400 MG?END OF CYCLE 8(28 DAYS)
     Route: 048
     Dates: start: 20250630, end: 20250720
  2. VENETOCLAX [Suspect]
     Active Substance: VENETOCLAX
     Indication: Acute myeloid leukaemia
     Dosage: 100 MG CYCLE 1
     Route: 048
     Dates: start: 20240914, end: 20240914
  3. VENETOCLAX [Suspect]
     Active Substance: VENETOCLAX
     Indication: Acute myeloid leukaemia
     Dosage: 200 MG CYCLE 1
     Route: 048
     Dates: start: 20240915, end: 20240915
  4. VENETOCLAX [Suspect]
     Active Substance: VENETOCLAX
     Indication: Acute myeloid leukaemia
     Dosage: 400 MG?END OF CYCLE1 (28 DAYS)
     Route: 048
     Dates: start: 20240916, end: 20241011
  5. VENETOCLAX [Suspect]
     Active Substance: VENETOCLAX
     Indication: Acute myeloid leukaemia
     Dosage: 400 MG?END OF CYCLE 2(28 DAYS)
     Route: 048
     Dates: start: 20241021, end: 20241111
  6. VENETOCLAX [Suspect]
     Active Substance: VENETOCLAX
     Indication: Acute myeloid leukaemia
     Dosage: 400 MG?END OF CYCLE 3(28 DAYS)
     Route: 048
     Dates: start: 20241119, end: 20241209
  7. VENETOCLAX [Suspect]
     Active Substance: VENETOCLAX
     Indication: Acute myeloid leukaemia
     Dosage: 400 MG?END OF CYCLE 4(28 DAYS)
     Route: 048
     Dates: start: 20241216, end: 20250105
  8. VENETOCLAX [Suspect]
     Active Substance: VENETOCLAX
     Indication: Acute myeloid leukaemia
     Dosage: 400 MG?END OF CYCLE 5(28 DAYS)
     Route: 048
     Dates: start: 20250120, end: 20250209
  9. VENETOCLAX [Suspect]
     Active Substance: VENETOCLAX
     Indication: Acute myeloid leukaemia
     Dosage: 400 MG?END OF CYCLE 6(28 DAYS)
     Route: 048
     Dates: start: 20250217, end: 20250309
  10. VENETOCLAX [Suspect]
     Active Substance: VENETOCLAX
     Indication: Acute myeloid leukaemia
     Dosage: 400 MG?END OF CYCLE 7(28 DAYS)
     Route: 048
     Dates: start: 20250317, end: 20250406
  11. AZACITIDINE [Suspect]
     Active Substance: AZACITIDINE
     Indication: Acute myeloid leukaemia
     Dosage: CYCLE 8
     Route: 065
     Dates: start: 20250630, end: 20250708
  12. AZACITIDINE [Suspect]
     Active Substance: AZACITIDINE
     Indication: Acute myeloid leukaemia
     Dosage: CYCLE 1
     Route: 065
     Dates: start: 20240914, end: 20240920
  13. AZACITIDINE [Suspect]
     Active Substance: AZACITIDINE
     Indication: Acute myeloid leukaemia
     Dosage: CYCLE 2
     Route: 065
     Dates: start: 20241021, end: 20241029
  14. AZACITIDINE [Suspect]
     Active Substance: AZACITIDINE
     Indication: Acute myeloid leukaemia
     Dosage: CYCLE 3
     Route: 065
     Dates: start: 20241119, end: 20241127
  15. AZACITIDINE [Suspect]
     Active Substance: AZACITIDINE
     Indication: Acute myeloid leukaemia
     Dosage: CYCLE 4
     Route: 065
     Dates: start: 20241216, end: 20241224
  16. AZACITIDINE [Suspect]
     Active Substance: AZACITIDINE
     Indication: Acute myeloid leukaemia
     Dosage: CYCLE 5
     Route: 065
     Dates: start: 20250120, end: 20250128
  17. AZACITIDINE [Suspect]
     Active Substance: AZACITIDINE
     Indication: Acute myeloid leukaemia
     Dosage: CYCLE 6
     Route: 065
     Dates: start: 20250217, end: 20250225
  18. AZACITIDINE [Suspect]
     Active Substance: AZACITIDINE
     Indication: Acute myeloid leukaemia
     Dosage: CYCLE 7
     Route: 065
     Dates: start: 20250317, end: 20250325
  19. AZACITIDINE [Suspect]
     Active Substance: AZACITIDINE
     Indication: Acute myeloid leukaemia
     Route: 065
  20. LAMIVUDINE [Concomitant]
     Active Substance: LAMIVUDINE
     Indication: Hepatitis B
     Route: 048
     Dates: start: 20240912
  21. PANTOPRAZOLE SODIUM [Concomitant]
     Active Substance: PANTOPRAZOLE SODIUM
     Indication: Reflux gastritis
     Route: 048
     Dates: start: 2019
  22. ALLOPURINOL [Concomitant]
     Active Substance: ALLOPURINOL
     Indication: Prophylaxis
     Route: 048
     Dates: start: 20240914, end: 20240921
  23. ONDANSETRON [Concomitant]
     Active Substance: ONDANSETRON
     Indication: Prophylaxis of nausea and vomiting
     Dosage: TIME INTERVAL: AS NECESSARY
     Route: 048
     Dates: start: 20241021, end: 20241029
  24. ENOXAPARIN SODIUM [Concomitant]
     Active Substance: ENOXAPARIN SODIUM
     Indication: Atrial fibrillation
     Dosage: 6000   2 TIMES PER DAY
     Route: 058
     Dates: start: 20240829, end: 20240905
  25. ENOXAPARIN SODIUM [Concomitant]
     Active Substance: ENOXAPARIN SODIUM
     Indication: Antiviral prophylaxis
     Dosage: 4000
     Route: 058
     Dates: start: 20240907, end: 20240914
  26. ACETAMINOPHEN [Concomitant]
     Active Substance: ACETAMINOPHEN
     Indication: Pain in extremity
     Dosage: 1GRAM
     Route: 048
     Dates: start: 20240911, end: 20240924
  27. Gentalyn beta [Concomitant]
     Indication: Rash
     Dosage: TIME INTERVAL: AS NECESSARY: 0.1+ 0.1?TOPICAL USE
     Dates: start: 20240919, end: 20240919

REACTIONS (1)
  - Disease progression [Not Recovered/Not Resolved]

NARRATIVE: CASE EVENT DATE: 20250910
